FAERS Safety Report 9908674 (Version 1)
Quarter: 2014Q1

REPORT INFORMATION
  Report Type: Spontaneous
  Country: US (occurrence: US)
  Receive Date: 20140219
  Receipt Date: 20140219
  Transmission Date: 20141002
  Serious: Yes (Hospitalization, Other)
  Sender: FDA-Public Use
  Company Number: US-ASTRAZENECA-2014SE09910

PATIENT
  Age: 61 Year
  Sex: Female
  Weight: 78 kg

DRUGS (3)
  1. NEXIUM [Suspect]
     Indication: GASTROOESOPHAGEAL REFLUX DISEASE
     Dosage: UNKNOWN DAILY
     Route: 048
     Dates: start: 2001, end: 20140120
  2. PROTONIX [Concomitant]
     Indication: GASTROOESOPHAGEAL REFLUX DISEASE
     Dosage: UNKNOWN UNK
     Route: 048
     Dates: start: 20140120
  3. MYLANTA [Concomitant]
     Indication: GASTROOESOPHAGEAL REFLUX DISEASE
     Dosage: UNKNOWN TID, AS NEEDED
     Route: 048
     Dates: start: 201401

REACTIONS (7)
  - Diverticulum [Unknown]
  - Exercise electrocardiogram abnormal [Unknown]
  - Weight decreased [Unknown]
  - Dizziness [Unknown]
  - Flatulence [Unknown]
  - Nausea [Unknown]
  - Intentional drug misuse [Unknown]
